FAERS Safety Report 8955650 (Version 1)
Quarter: 2012Q4

REPORT INFORMATION
  Report Type: 
  Country: US (occurrence: US)
  Receive Date: 20121207
  Receipt Date: 20121207
  Transmission Date: 20130627
  Serious: No
  Sender: FDA-Public Use
  Company Number: US-PFIZER INC-2012305531

PATIENT
  Age: 55 Year
  Sex: Female
  Weight: 49.89 kg

DRUGS (3)
  1. PRISTIQ [Suspect]
     Indication: ANXIETY
     Dosage: 50 mg, daily
     Dates: start: 20121121
  2. PRISTIQ [Suspect]
     Indication: DEPRESSION
  3. LEVOXYL [Concomitant]
     Indication: THYROID ACTIVITY DECREASED
     Dosage: 75 ug, daily

REACTIONS (4)
  - Dyspepsia [Not Recovered/Not Resolved]
  - Gastrooesophageal reflux disease [Not Recovered/Not Resolved]
  - Joint stiffness [Not Recovered/Not Resolved]
  - Myalgia [Not Recovered/Not Resolved]
